FAERS Safety Report 25799875 (Version 1)
Quarter: 2025Q3

REPORT INFORMATION
  Report Type: Spontaneous
  Country: US (occurrence: US)
  Receive Date: 20250914
  Receipt Date: 20250914
  Transmission Date: 20251020
  Serious: Yes (Hospitalization)
  Sender: MERCK SHARP & DOHME LLC
  Company Number: US-009507513-2328480

PATIENT
  Age: 69 Year
  Sex: Male

DRUGS (1)
  1. PEMBROLIZUMAB [Suspect]
     Active Substance: PEMBROLIZUMAB
     Indication: Rectosigmoid cancer recurrent

REACTIONS (4)
  - Adrenocorticotropic hormone deficiency [Unknown]
  - Acute kidney injury [Unknown]
  - Inappropriate schedule of product administration [Unknown]
  - Immune-mediated hypophysitis [Unknown]
